FAERS Safety Report 15726274 (Version 4)
Quarter: 2021Q1

REPORT INFORMATION
  Report Type: Report from Study
  Country: GB (occurrence: GB)
  Receive Date: 20181216
  Receipt Date: 20210312
  Transmission Date: 20210419
  Serious: Yes (Death, Other)
  Sender: FDA-Public Use
  Company Number: GB-TEVA-2018-GB-986393

PATIENT
  Age: 61 Year
  Sex: Female

DRUGS (58)
  1. ERIBULIN MESILATE [Suspect]
     Active Substance: ERIBULIN
     Dosage: 1.5 MG
     Route: 042
  2. PERTUZUMAB. [Suspect]
     Active Substance: PERTUZUMAB
     Dosage: 1 DOSAGE FORM, UNK,  DOSE REDUCED
     Route: 042
  3. TRASTUZUMAB EMTANSINE [Suspect]
     Active Substance: ADO-TRASTUZUMAB EMTANSINE
     Dosage: 140 MG
     Route: 042
     Dates: start: 20151201, end: 20160215
  4. MEROPENEM. [Concomitant]
     Active Substance: MEROPENEM
     Indication: LOWER RESPIRATORY TRACT INFECTION
     Route: 042
     Dates: start: 20170215, end: 20170221
  5. DOMPERIDONE [Concomitant]
     Active Substance: DOMPERIDONE
     Dosage: 30 MILLIGRAM DAILY;
     Route: 048
     Dates: start: 20160406, end: 20160421
  6. CIPROFLOXACIN. [Concomitant]
     Active Substance: CIPROFLOXACIN
     Dosage: 1000 MILLIGRAM DAILY;
     Route: 048
     Dates: start: 20151218, end: 20151225
  7. TAZOCIN [Concomitant]
     Active Substance: PIPERACILLIN SODIUM\TAZOBACTAM SODIUM
     Indication: LOWER RESPIRATORY TRACT INFECTION
     Route: 042
     Dates: start: 20170213, end: 20170215
  8. FILGRASTIM [Concomitant]
     Active Substance: FILGRASTIM
     Dosage: 300 MICROGRAM
     Route: 058
     Dates: start: 20150725, end: 20150730
  9. LOPERAMIDE [Concomitant]
     Active Substance: LOPERAMIDE
     Indication: DIARRHOEA
     Dosage: 2 MG
     Route: 048
     Dates: start: 20170901, end: 20171124
  10. FOLIC ACID. [Concomitant]
     Active Substance: FOLIC ACID
     Indication: BLOOD FOLATE DECREASED
     Dosage: 5 MILLIGRAM DAILY;
     Route: 048
     Dates: start: 20150828, end: 201708
  11. DOCETAXEL. [Suspect]
     Active Substance: DOCETAXEL
     Indication: HER2 POSITIVE BREAST CANCER
     Dosage: DOSE MODIFIED , 108 MG
     Route: 042
     Dates: start: 20150602, end: 20150602
  12. ERIBULIN MESILATE [Suspect]
     Active Substance: ERIBULIN
     Dosage: 1.5 MG
     Route: 042
     Dates: start: 20160411
  13. VINORELBINE [Suspect]
     Active Substance: VINORELBINE TARTRATE
     Dosage: 60 MG
     Route: 048
  14. TRASTUZUMAB. [Suspect]
     Active Substance: TRASTUZUMAB
     Dosage: 350 MG , LOADING DOSE
     Route: 042
     Dates: end: 20150601
  15. TRASTUZUMAB. [Suspect]
     Active Substance: TRASTUZUMAB
     Dosage: 172 MG
     Route: 042
     Dates: start: 20151201, end: 20151221
  16. TRASTUZUMAB. [Suspect]
     Active Substance: TRASTUZUMAB
     Dosage: DOSE REDUCED , 1 DOSAGE FORM,
     Route: 042
  17. TRASTUZUMAB. [Suspect]
     Active Substance: TRASTUZUMAB
     Dosage: 140 MG
     Route: 042
     Dates: start: 20160215, end: 20160215
  18. TRASTUZUMAB. [Suspect]
     Active Substance: TRASTUZUMAB
     Dosage: UNK UNK,  DOSE REDUCED
     Route: 042
  19. NERATINIB [Suspect]
     Active Substance: NERATINIB
     Indication: HER2 POSITIVE BREAST CANCER
     Dosage: 40 MILLIGRAM DAILY;
     Route: 048
     Dates: start: 20170901, end: 20180314
  20. NERATINIB [Suspect]
     Active Substance: NERATINIB
     Dosage: UNK
     Route: 065
  21. GENTAMICIN. [Concomitant]
     Active Substance: GENTAMICIN
     Indication: LOWER RESPIRATORY TRACT INFECTION
     Route: 042
     Dates: start: 20170213, end: 201702
  22. ERIBULIN MESILATE [Suspect]
     Active Substance: ERIBULIN
     Indication: HER2 POSITIVE BREAST CANCER
     Dosage: 1.5 MG
     Route: 042
  23. PERTUZUMAB. [Suspect]
     Active Substance: PERTUZUMAB
     Indication: BREAST CANCER METASTATIC
     Dosage: LOADING DOSE , 840 MG
     Route: 042
  24. TRASTUZUMAB EMTANSINE [Suspect]
     Active Substance: ADO-TRASTUZUMAB EMTANSINE
     Indication: HER2 POSITIVE BREAST CANCER
     Dosage: 172 MG
     Route: 042
  25. TRASTUZUMAB EMTANSINE [Suspect]
     Active Substance: ADO-TRASTUZUMAB EMTANSINE
     Indication: BREAST CANCER METASTATIC
     Dosage: 140 MG
     Route: 042
  26. TRASTUZUMAB EMTANSINE [Suspect]
     Active Substance: ADO-TRASTUZUMAB EMTANSINE
     Dosage: 172 MG
     Route: 042
     Dates: start: 20151201
  27. MUPIROCIN. [Concomitant]
     Active Substance: MUPIROCIN
     Indication: PROPHYLAXIS
     Dosage: 2 PERCENT DAILY;
     Route: 061
     Dates: start: 20160620, end: 20160624
  28. DOMPERIDONE [Concomitant]
     Active Substance: DOMPERIDONE
     Dosage: 10 MILLIGRAM DAILY;
     Route: 048
     Dates: start: 20160406, end: 20160421
  29. CIPROFLOXACIN. [Concomitant]
     Active Substance: CIPROFLOXACIN
     Dosage: 500 MILLIGRAM DAILY;
     Route: 048
     Dates: start: 20151218, end: 20151225
  30. LOPERAMIDE [Concomitant]
     Active Substance: LOPERAMIDE
     Dosage: 2 MILLIGRAM, PRN
     Route: 048
     Dates: start: 20170901, end: 20171124
  31. CO?AMOXICLAV [Concomitant]
     Active Substance: AMOXICILLIN\CLAVULANATE POTASSIUM
     Dosage: 1875 MILLIGRAM DAILY;
     Route: 048
     Dates: start: 20170222, end: 20170228
  32. IRRADIATED RED BLOOD CELLS?LEUKOCYTES REDUCED [Concomitant]
     Active Substance: HUMAN RED BLOOD CELL
     Dosage: 2 UNIT
     Route: 042
     Dates: start: 20160702, end: 20160702
  33. DOCETAXEL. [Suspect]
     Active Substance: DOCETAXEL
     Dosage: 108 MG
     Route: 042
  34. CAPECITABINE. [Suspect]
     Active Substance: CAPECITABINE
     Indication: BREAST CANCER METASTATIC
     Dosage: 6000 MILLIGRAM DAILY;
     Route: 048
  35. CAPECITABINE. [Suspect]
     Active Substance: CAPECITABINE
     Dosage: 3000 MILLIGRAM DAILY;
     Route: 048
     Dates: start: 20170210, end: 20170728
  36. ERIBULIN MESILATE [Suspect]
     Active Substance: ERIBULIN
     Indication: BREAST CANCER METASTATIC
     Dosage: UNK
     Route: 065
  37. TRASTUZUMAB EMTANSINE [Suspect]
     Active Substance: ADO-TRASTUZUMAB EMTANSINE
     Dosage: 172 MG
     Route: 042
     Dates: start: 20151201, end: 20151221
  38. NERATINIB [Suspect]
     Active Substance: NERATINIB
     Indication: BREAST CANCER METASTATIC
     Dosage: 40 MILLIGRAM DAILY;
     Route: 048
  39. MUPIROCIN. [Concomitant]
     Active Substance: MUPIROCIN
     Dosage: 6 PERCENT DAILY;
     Route: 061
     Dates: start: 20160620, end: 20160624
  40. SANDO K [Concomitant]
     Indication: NUTRITIONAL SUPPLEMENTATION
     Dosage: 2 DOSAGE FORMS DAILY;
     Route: 048
     Dates: start: 20150828, end: 20150830
  41. FILGRASTIM [Concomitant]
     Active Substance: FILGRASTIM
     Dosage: 300 MICROGRAM DAILY;
     Route: 058
     Dates: start: 20150725, end: 20150730
  42. DOCETAXEL. [Suspect]
     Active Substance: DOCETAXEL
     Indication: BREAST CANCER METASTATIC
     Dosage: DOSE DISCONTINUED , 86 MG
     Route: 042
     Dates: start: 20150629, end: 20150720
  43. CAPECITABINE. [Suspect]
     Active Substance: CAPECITABINE
     Indication: HER2 POSITIVE BREAST CANCER
     Dosage: 1500 MILLIGRAM DAILY;
     Route: 048
     Dates: start: 20170210, end: 20170728
  44. PERTUZUMAB. [Suspect]
     Active Substance: PERTUZUMAB
     Dosage: TARGETED THERAPY , 420 MG
     Route: 042
  45. VINORELBINE [Suspect]
     Active Substance: VINORELBINE TARTRATE
     Indication: HER2 POSITIVE BREAST CANCER
     Dosage: 60 MG
     Route: 048
     Dates: start: 20180503, end: 20180608
  46. TRASTUZUMAB. [Suspect]
     Active Substance: TRASTUZUMAB
     Indication: HER2 POSITIVE BREAST CANCER
     Dosage: LOADING DOSE , 350 MG
     Route: 042
     Dates: start: 20150601, end: 20150601
  47. CO?AMOXICLAV [Concomitant]
     Active Substance: AMOXICILLIN\CLAVULANATE POTASSIUM
     Indication: LOWER RESPIRATORY TRACT INFECTION
     Dosage: 625 MILLIGRAM DAILY;
     Route: 048
     Dates: start: 20170222, end: 20170228
  48. IRRADIATED RED BLOOD CELLS?LEUKOCYTES REDUCED [Concomitant]
     Active Substance: HUMAN RED BLOOD CELL
     Dosage: 2 UNIT
     Route: 042
     Dates: start: 20180526, end: 20180526
  49. VINORELBINE [Suspect]
     Active Substance: VINORELBINE TARTRATE
     Indication: BREAST CANCER METASTATIC
     Dosage: 60 MG
     Route: 048
     Dates: start: 20180608, end: 20180810
  50. TRASTUZUMAB. [Suspect]
     Active Substance: TRASTUZUMAB
     Indication: BREAST CANCER METASTATIC
     Dosage: DOSE MODIFIED , 300 MG
     Route: 042
     Dates: start: 20150629, end: 20151102
  51. MUPIROCIN. [Concomitant]
     Active Substance: MUPIROCIN
     Dosage: 2 PERCENT
     Route: 061
     Dates: start: 20160620, end: 20160624
  52. FILGRASTIM [Concomitant]
     Active Substance: FILGRASTIM
     Dosage: EVERY DAY FOR 3 DAYS STARTING ON DAYS 3 AND 11 , 300 MICROGRAM
     Route: 058
     Dates: start: 20160421, end: 20160721
  53. PERTUZUMAB. [Suspect]
     Active Substance: PERTUZUMAB
     Indication: HER2 POSITIVE BREAST CANCER
     Dosage: TARGETED THERAPY , 420 MG
     Route: 042
     Dates: start: 20150622, end: 20151102
  54. TRASTUZUMAB EMTANSINE [Suspect]
     Active Substance: ADO-TRASTUZUMAB EMTANSINE
     Dosage: 140 MG
     Route: 042
     Dates: start: 20160215, end: 20160215
  55. TRASTUZUMAB EMTANSINE [Suspect]
     Active Substance: ADO-TRASTUZUMAB EMTANSINE
     Dosage: 140 MG
     Route: 042
  56. TRASTUZUMAB. [Suspect]
     Active Substance: TRASTUZUMAB
     Dosage: 300 MG
     Route: 042
  57. DOMPERIDONE [Concomitant]
     Active Substance: DOMPERIDONE
     Dosage: 10 MILLIGRAM DAILY;
     Route: 048
     Dates: start: 20160406, end: 20160421
  58. AMLODIPINE [Concomitant]
     Active Substance: AMLODIPINE BESYLATE
     Indication: PRODUCT USED FOR UNKNOWN INDICATION
     Route: 048

REACTIONS (27)
  - Diarrhoea [Recovered/Resolved]
  - Dyspepsia [Recovered/Resolved]
  - Nausea [Recovered/Resolved]
  - Off label use [Unknown]
  - Throat irritation [Not Recovered/Not Resolved]
  - Pyrexia [Recovered/Resolved]
  - Decreased appetite [Recovered/Resolved]
  - Folate deficiency [Recovered/Resolved]
  - Disease progression [Fatal]
  - Colitis [Not Recovered/Not Resolved]
  - Weight decreased [Not Recovered/Not Resolved]
  - Lethargy [Recovered/Resolved]
  - Palpitations [Unknown]
  - Cough [Recovered/Resolved]
  - Odynophagia [Not Recovered/Not Resolved]
  - Hyperchlorhydria [Recovered/Resolved]
  - Product use issue [Unknown]
  - Neutropenia [Not Recovered/Not Resolved]
  - Fatigue [Recovered/Resolved]
  - Tremor [Recovered/Resolved]
  - Thrombocytopenia [Not Recovered/Not Resolved]
  - Pancytopenia [Not Recovered/Not Resolved]
  - Rash pruritic [Recovered/Resolved]
  - Dysphonia [Recovering/Resolving]
  - Hyperchlorhydria [Recovered/Resolved]
  - Neuropathy peripheral [Unknown]
  - Mucosal inflammation [Recovered/Resolved]

NARRATIVE: CASE EVENT DATE: 20150601
